FAERS Safety Report 8255000-0 (Version None)
Quarter: 2012Q2

REPORT INFORMATION
  Report Type: 
  Country: None (occurrence: None)
  Receive Date: 20120403
  Receipt Date: 20120328
  Transmission Date: 20120825
  Serious: Yes (Hospitalization, Disabling, Other)
  Sender: FDA-Public Use
  Company Number: US-AMGEN-USASP2012019952

PATIENT
  Age: 43 Year
  Sex: Female
  Weight: 66.213 kg

DRUGS (6)
  1. KINERET [Concomitant]
     Dosage: UNK
     Dates: start: 20030601, end: 20060401
  2. METHOTREXATE [Concomitant]
     Dosage: UNK
     Dates: start: 20030601, end: 20111001
  3. TOCILIZUMAB [Concomitant]
     Dosage: UNK
     Dates: start: 20101101, end: 20110401
  4. ARAVA [Concomitant]
     Dosage: UNK
     Dates: start: 20030601, end: 20060401
  5. RITUXAN [Suspect]
     Indication: RHEUMATOID ARTHRITIS
     Dosage: 1000 MG, Q2WK
     Route: 041
     Dates: start: 20070501
  6. ENBREL [Suspect]
     Indication: RHEUMATOID ARTHRITIS
     Dosage: 25 MG, 2 TIMES/WK
     Route: 058
     Dates: start: 20000701, end: 20020201

REACTIONS (3)
  - DEFORMITY [None]
  - VULVAR DYSPLASIA [None]
  - NEURODERMATITIS [None]
